FAERS Safety Report 23326600 (Version 1)
Quarter: 2023Q4

REPORT INFORMATION
  Report Type: Spontaneous
  Country: US (occurrence: US)
  Receive Date: 20231221
  Receipt Date: 20231221
  Transmission Date: 20240110
  Serious: Yes (Other)
  Sender: FDA-Public Use
  Company Number: US-BAYER-2023A180416

PATIENT
  Age: 71 Year
  Sex: Female

DRUGS (1)
  1. ALKA-SELTZER PLUS MAXIMUM STRENGTH NIGHT COLD AND FLU POWERMAX GELS [Suspect]
     Active Substance: ACETAMINOPHEN\DEXTROMETHORPHAN HYDROBROMIDE\DOXYLAMINE SUCCINATE\PHENYLEPHRINE HYDROCHLORIDE
     Route: 048

REACTIONS (2)
  - Foreign body in throat [Recovering/Resolving]
  - Retching [Recovering/Resolving]
